FAERS Safety Report 18585495 (Version 1)
Quarter: 2020Q4

REPORT INFORMATION
  Report Type: Spontaneous
  Country: US (occurrence: US)
  Receive Date: 20201204
  Receipt Date: 20201204
  Transmission Date: 20210114
  Serious: Yes (Hospitalization)
  Sender: FDA-Public Use
  Company Number: None

PATIENT
  Sex: Male
  Weight: 72.8 kg

DRUGS (19)
  1. ETOSPOSIDE (VP-16) [Suspect]
     Active Substance: ETOPOSIDE
     Indication: PRODUCT USED FOR UNKNOWN INDICATION
     Dates: end: 20201103
  2. ACETAMINOPHEN. [Concomitant]
     Active Substance: ACETAMINOPHEN
  3. FENTANYL. [Concomitant]
     Active Substance: FENTANYL
  4. METHOTREXATE. [Suspect]
     Active Substance: METHOTREXATE
     Dates: end: 20201023
  5. GENTAMICIN. [Concomitant]
     Active Substance: GENTAMICIN
  6. HEPARIN [Concomitant]
     Active Substance: HEPARIN SODIUM
  7. HYDROXYZINE [Concomitant]
     Active Substance: HYDROXYZINE HYDROCHLORIDE
  8. MCAFUNGIN [Concomitant]
  9. DIPHENHYDRAMINE. [Concomitant]
     Active Substance: DIPHENHYDRAMINE
  10. MEPERIDINE [Concomitant]
     Active Substance: MEPERIDINE
  11. ISAVUCONAZONIUM SULFATE [Concomitant]
     Active Substance: ISAVUCONAZONIUM SULFATE
  12. ONDANSETRON [Concomitant]
     Active Substance: ONDANSETRON
  13. MORPHINE [Concomitant]
     Active Substance: MORPHINE
  14. LORAZEPAM. [Concomitant]
     Active Substance: LORAZEPAM
  15. CYTARABINE. [Suspect]
     Active Substance: CYTARABINE
     Indication: PRODUCT USED FOR UNKNOWN INDICATION
     Dates: end: 20201103
  16. HYDROCORTISONE. [Suspect]
     Active Substance: HYDROCORTISONE
     Dates: end: 20201023
  17. DAPTOMYCIN. [Concomitant]
     Active Substance: DAPTOMYCIN
  18. DOCUSATE [Concomitant]
     Active Substance: DOCUSATE
  19. MEROPENEM. [Concomitant]
     Active Substance: MEROPENEM

REACTIONS (6)
  - Respiratory distress [None]
  - Febrile neutropenia [None]
  - Colitis [None]
  - Hypovolaemic shock [None]
  - Sepsis [None]
  - Haemophagocytic lymphohistiocytosis [None]

NARRATIVE: CASE EVENT DATE: 20201120
